FAERS Safety Report 5265992-X (Version None)
Quarter: 2007Q1

REPORT INFORMATION
  Report Type: 
  Country: None (occurrence: None)
  Receive Date: 20070312
  Receipt Date: 20070312
  Transmission Date: 20070707
  Serious: Yes (Life-Threatening)
  Sender: FDA-Public Use
  Company Number: None

PATIENT
  Age: 61 Year
  Sex: Male
  Weight: 63.5036 kg

DRUGS (12)
  1. LIDOCAINE [Suspect]
     Indication: PAIN
     Dosage: MULTIPLE DOSES, SC
     Route: 058
     Dates: start: 20060714, end: 20060717
  2. HYLENEX RECOMBINANT [Suspect]
     Dosage: ONE DOSE, 150 U, SC
     Route: 058
     Dates: start: 20060714
  3. SUFENTANIL CITRATE [Concomitant]
  4. DEXAMETHASONE [Concomitant]
  5. PREGABALIN [Concomitant]
  6. HALOPERIDOL [Concomitant]
  7. LORAZEPAM [Concomitant]
  8. BENZTROPIN [Concomitant]
  9. TRANSDERMAL NICOTINE [Concomitant]
  10. ACETAMINOPHEN [Concomitant]
  11. GLYCOPYRROLATE [Concomitant]
  12. CHLORPROMAZINE [Concomitant]

REACTIONS (8)
  - ARRHYTHMIA [None]
  - BODY TEMPERATURE INCREASED [None]
  - CONVULSION [None]
  - DELIRIUM [None]
  - DEPRESSED LEVEL OF CONSCIOUSNESS [None]
  - DRUG LEVEL ABOVE THERAPEUTIC [None]
  - DRUG TOXICITY [None]
  - MYOCLONUS [None]
